FAERS Safety Report 12194978 (Version 1)
Quarter: 2016Q1

REPORT INFORMATION
  Report Type: Spontaneous
  Country: US (occurrence: US)
  Receive Date: 20160321
  Receipt Date: 20160321
  Transmission Date: 20160526
  Serious: No
  Sender: FDA-Public Use
  Company Number: US-TARO-2015TAR00714

PATIENT
  Age: 74 Year
  Sex: Female
  Weight: 50.79 kg

DRUGS (6)
  1. CICLOPIROX SHAMPOO 1% [Suspect]
     Active Substance: CICLOPIROX
     Indication: DERMATITIS CONTACT
     Dosage: UNK, 1X/DAY
     Route: 061
     Dates: start: 20151204, end: 20151204
  2. CICLOPIROX SHAMPOO 1% [Suspect]
     Active Substance: CICLOPIROX
     Dosage: UNK UNK, 3X/DAY
     Route: 061
     Dates: start: 20151205, end: 20151205
  3. CICLOPIROX SHAMPOO 1% [Suspect]
     Active Substance: CICLOPIROX
     Dosage: UNK, 1X/DAY
     Route: 061
     Dates: start: 20151206, end: 20151206
  4. CICLOPIROX SHAMPOO 1% [Suspect]
     Active Substance: CICLOPIROX
     Indication: SEBORRHOEIC DERMATITIS
     Dosage: 1 TSP, 3X/WEEK
     Route: 061
     Dates: start: 201504, end: 2015
  5. CICLOPIROX SHAMPOO 1% [Suspect]
     Active Substance: CICLOPIROX
     Indication: NEURODERMATITIS
     Dosage: 1 TSP, 3X/WEEK
     Route: 061
     Dates: start: 201507, end: 2015
  6. VITAMIN [Concomitant]
     Active Substance: VITAMINS
     Dosage: UNK

REACTIONS (7)
  - Tremor [Unknown]
  - Off label use [Unknown]
  - Headache [Recovering/Resolving]
  - Pain [Recovered/Resolved]
  - Inappropriate schedule of drug administration [Recovered/Resolved]
  - Application site pain [Recovered/Resolved]
  - Insomnia [Unknown]

NARRATIVE: CASE EVENT DATE: 2015
